FAERS Safety Report 9084035 (Version 1)
Quarter: 2013Q1

REPORT INFORMATION
  Report Type: Spontaneous
  Country: NZ (occurrence: NZ)
  Receive Date: 20130218
  Receipt Date: 20130218
  Transmission Date: 20140127
  Serious: Yes (Death)
  Sender: FDA-Public Use
  Company Number: PHHY2013NZ014051

PATIENT
  Age: 43 Year
  Sex: Female

DRUGS (16)
  1. ESTRADIOL [Suspect]
     Indication: HORMONE REPLACEMENT THERAPY
     Dosage: 2 MG, BID
  2. ESTRADIOL [Suspect]
     Dosage: UNK UKN, UNK
  3. CYPROTERONE [Suspect]
     Indication: HORMONE REPLACEMENT THERAPY
     Dosage: UNK UKN, UNK
     Dates: start: 1995, end: 2002
  4. CYPROTERONE [Suspect]
     Dosage: 50 MG, UNK
     Dates: start: 2005, end: 2006
  5. SPIRONOLACTONE [Suspect]
     Indication: HORMONE REPLACEMENT THERAPY
     Dosage: 200 MG, QD
     Dates: start: 2006
  6. DOXEPIN [Suspect]
     Dosage: UNK UKN, UNK
  7. CONJUGATED ESTROGENS [Suspect]
     Indication: HORMONE REPLACEMENT THERAPY
     Dosage: UNK UKN, UNK
     Dates: start: 1995, end: 2002
  8. CONJUGATED ESTROGENS [Suspect]
     Dosage: UNK
     Dates: start: 2005
  9. ANTIPSYCHOTICS [Concomitant]
     Dosage: UNK UKN, UNK
  10. RISPERIDONE [Concomitant]
     Dosage: UNK UKN, UNK
  11. QUETIAPINE [Concomitant]
     Dosage: UNK UKN, UNK
  12. CLONAZEPAM [Concomitant]
     Dosage: UNK UKN, UNK
  13. METHOTRIMEPRAZINE [Concomitant]
     Dosage: UNK UKN, UNK
  14. FLUOXETINE [Concomitant]
     Dosage: UNK UKN, UNK
  15. AMISULPRIDE [Concomitant]
     Dosage: UNK UKN, UNK
     Dates: start: 201005
  16. ANTIBIOTICS [Concomitant]
     Dosage: UNK UKN, UNK

REACTIONS (8)
  - Breast cancer [Fatal]
  - Breast pain [Fatal]
  - Breast mass [Fatal]
  - Erythema [Fatal]
  - Metastases to bone [Fatal]
  - Chest pain [Fatal]
  - Hepatic cancer metastatic [Fatal]
  - Overdose [Fatal]
